FAERS Safety Report 8602243-X (Version None)
Quarter: 2012Q3

REPORT INFORMATION
  Report Type: 
  Country: None (occurrence: None)
  Receive Date: 20120817
  Receipt Date: 20120808
  Transmission Date: 20120928
  Serious: Yes (Other)
  Sender: FDA-Public Use
  Company Number: ES-ABBOTT-12P-144-0966653-01

PATIENT
  Sex: Male

DRUGS (5)
  1. HUMIRA [Suspect]
     Route: 058
     Dates: start: 20100408, end: 20100510
  2. REMICADE [Concomitant]
     Indication: PRODUCT USED FOR UNKNOWN INDICATION
  3. HUMIRA [Suspect]
     Indication: CROHN'S DISEASE
     Dosage: BASELINE
     Route: 058
     Dates: start: 20090604, end: 20090604
  4. HUMIRA [Suspect]
     Dosage: WEEK 2
     Route: 058
  5. HUMIRA [Suspect]
     Route: 058

REACTIONS (1)
  - CROHN'S DISEASE [None]
